FAERS Safety Report 10084367 (Version 1)
Quarter: 2014Q2

REPORT INFORMATION
  Report Type: Spontaneous
  Country: US (occurrence: US)
  Receive Date: 20140417
  Receipt Date: 20140417
  Transmission Date: 20141212
  Serious: Yes (Death, Hospitalization)
  Sender: FDA-Public Use
  Company Number: US-ACTELION-A-NJ2014-97440

PATIENT
  Age: 70 Year
  Sex: Male

DRUGS (2)
  1. OPSUMIT [Suspect]
     Indication: PULMONARY HYPERTENSION
     Dosage: 10 MG, QD
     Route: 048
     Dates: start: 201402
  2. ADCIRCA [Concomitant]

REACTIONS (3)
  - Pulmonary arterial hypertension [Fatal]
  - Disease progression [Fatal]
  - Chronic obstructive pulmonary disease [Fatal]
